FAERS Safety Report 7536427-9 (Version None)
Quarter: 2011Q2

REPORT INFORMATION
  Report Type: 
  Country: None (occurrence: None)
  Receive Date: 20110609
  Receipt Date: 20110606
  Transmission Date: 20111010
  Serious: Yes (Death, Hospitalization)
  Sender: FDA-Public Use
  Company Number: JP-SANOFI-AVENTIS-2010SA066410

PATIENT
  Age: 64 Year
  Sex: Female

DRUGS (2)
  1. TAXOTERE [Suspect]
     Indication: BREAST CANCER
     Route: 042
     Dates: start: 20090716, end: 20090917
  2. DEXAMETHASONE [Concomitant]
     Indication: BREAST CANCER
     Dates: start: 20090716, end: 20090917

REACTIONS (1)
  - INTERSTITIAL LUNG DISEASE [None]
